FAERS Safety Report 20786823 (Version 5)
Quarter: 2024Q1

REPORT INFORMATION
  Report Type: Report from Study
  Country: IL (occurrence: IL)
  Receive Date: 20220505
  Receipt Date: 20240129
  Transmission Date: 20240409
  Serious: Yes (Hospitalization)
  Sender: FDA-Public Use
  Company Number: IL-PFIZER INC-202101227238

PATIENT
  Age: 42 Year
  Sex: Female

DRUGS (3)
  1. ENBREL [Suspect]
     Active Substance: ETANERCEPT
     Indication: Rheumatoid arthritis
     Dosage: 25 MILLIGRAM, 2 TIMES/WK
     Route: 058
     Dates: start: 20121123
  2. ENBREL [Suspect]
     Active Substance: ETANERCEPT
     Dosage: 50 MILLIGRAM, QWK
     Route: 058
  3. ENBREL [Suspect]
     Active Substance: ETANERCEPT
     Dosage: 25 MILLIGRAM, 2 TIMES/WK
     Route: 058

REACTIONS (10)
  - Coronavirus infection [Recovering/Resolving]
  - Infection [Recovered/Resolved]
  - Eye infection [Recovering/Resolving]
  - Eye injury [Recovering/Resolving]
  - Full blood count abnormal [Recovering/Resolving]
  - Wrong technique in device usage process [Unknown]
  - Product preparation issue [Unknown]
  - Product administration error [Unknown]
  - Incorrect disposal of product [Unknown]
  - Product dose omission issue [Unknown]

NARRATIVE: CASE EVENT DATE: 20210101
